FAERS Safety Report 7442381-0 (Version None)
Quarter: 2011Q2

REPORT INFORMATION
  Report Type: 
  Country: None (occurrence: None)
  Receive Date: 20110425
  Receipt Date: 20110425
  Transmission Date: 20111010
  Serious: No
  Sender: FDA-Public Use
  Company Number: None

PATIENT
  Age: 46 Year
  Sex: Male
  Weight: 72.5755 kg

DRUGS (1)
  1. OREGON CREME II REGULAR OREGON COLLECTION [Suspect]
     Indication: ANALGESIC THERAPY
     Dosage: MASAGE CREME DAILY TRANSDERMAL
     Route: 062

REACTIONS (4)
  - RASH [None]
  - PRODUCT LABEL ISSUE [None]
  - PRODUCT LABEL COUNTERFEIT [None]
  - PRODUCT STERILITY LACKING [None]
